FAERS Safety Report 16559524 (Version 3)
Quarter: 2020Q2

REPORT INFORMATION
  Report Type: Spontaneous
  Country: GB (occurrence: GB)
  Receive Date: 20190711
  Receipt Date: 20200424
  Transmission Date: 20200713
  Serious: Yes (Hospitalization, Disabling)
  Sender: FDA-Public Use
  Company Number: GB-ACCORD-137858

PATIENT
  Age: 84 Year
  Sex: Female
  Weight: 49.5 kg

DRUGS (12)
  1. RAMIPRIL. [Suspect]
     Active Substance: RAMIPRIL
     Indication: ESSENTIAL HYPERTENSION
     Dosage: MORNING
     Route: 048
     Dates: start: 20170401, end: 20190601
  2. PREGABALIN. [Concomitant]
     Active Substance: PREGABALIN
  3. AMLODIPINE [Concomitant]
     Active Substance: AMLODIPINE BESYLATE
  4. PARACETAMOL [Concomitant]
     Active Substance: ACETAMINOPHEN
  5. RIVASTIGMINE/RIVASTIGMINE TARTRATE [Concomitant]
     Active Substance: RIVASTIGMINE
  6. ATORVASTATIN [Concomitant]
     Active Substance: ATORVASTATIN
  7. ACCRETE D3 [Concomitant]
     Active Substance: CALCIUM CARBONATE\CHOLECALCIFEROL
  8. CLOPIDOGREL [Concomitant]
     Active Substance: CLOPIDOGREL BISULFATE
  9. HYDROXOCOBALAMIN [Concomitant]
     Active Substance: HYDROXOCOBALAMIN
  10. RAMIPRIL. [Suspect]
     Active Substance: RAMIPRIL
     Indication: ESSENTIAL HYPERTENSION
     Route: 048
     Dates: start: 20190531
  11. CHLORAMPHENICOL [Concomitant]
     Active Substance: CHLORAMPHENICOL
  12. RELVAR ELLIPTA [Concomitant]
     Active Substance: FLUTICASONE FUROATE\VILANTEROL TRIFENATATE

REACTIONS (8)
  - Acute kidney injury [Recovered/Resolved]
  - Dehydration [Unknown]
  - Malaise [Unknown]
  - Feeling abnormal [Unknown]
  - Decreased appetite [Unknown]
  - Mobility decreased [Unknown]
  - Kidney infection [Recovering/Resolving]
  - Fatigue [Unknown]

NARRATIVE: CASE EVENT DATE: 20190525
